FAERS Safety Report 9149614 (Version 1)
Quarter: 2013Q1

REPORT INFORMATION
  Report Type: Spontaneous
  Country: US (occurrence: US)
  Receive Date: 20130308
  Receipt Date: 20130308
  Transmission Date: 20140127
  Serious: Yes (Other)
  Sender: FDA-Public Use
  Company Number: US-BAYER-2013-027945

PATIENT
  Age: 25 Year
  Sex: Female
  Weight: 54.42 kg

DRUGS (9)
  1. YAZ [Suspect]
  2. GIANVI [Suspect]
  3. YASMIN [Suspect]
     Indication: CONTRACEPTION
  4. DOXYCYCLINE HYCLATE [Concomitant]
     Dosage: 100 MG, UNK
     Route: 048
  5. ADAPALENE [Concomitant]
     Dosage: 0.3 %, UNK
     Route: 061
  6. FLUTICASONE [Concomitant]
     Dosage: 50 ?G, UNK
     Route: 045
  7. ADVIL [Concomitant]
  8. TORADOL [Concomitant]
     Dosage: 60 MG, UNK
     Route: 030
  9. KETOROLAC [Concomitant]
     Dosage: 60 MG, UNK
     Route: 030

REACTIONS (1)
  - Pulmonary embolism [None]
